FAERS Safety Report 7999579-2 (Version None)
Quarter: 2011Q4

REPORT INFORMATION
  Report Type: 
  Country: None (occurrence: None)
  Receive Date: 20111221
  Receipt Date: 20111216
  Transmission Date: 20120403
  Serious: Yes (Hospitalization)
  Sender: FDA-Public Use
  Company Number: US-PFIZER INC-2011127073

PATIENT
  Sex: Male

DRUGS (4)
  1. BUPROPION [Concomitant]
     Indication: ANXIETY
     Dosage: UNK
     Dates: start: 19970101
  2. BUPROPION [Concomitant]
     Indication: SMOKING CESSATION THERAPY
  3. BUPROPION [Concomitant]
     Indication: DEPRESSION
  4. CHANTIX [Suspect]
     Indication: SMOKING CESSATION THERAPY
     Dosage: UNK
     Dates: start: 20090601, end: 20100101

REACTIONS (5)
  - ABNORMAL DREAMS [None]
  - DEPRESSION [None]
  - PANIC ATTACK [None]
  - ANXIETY [None]
  - INSOMNIA [None]
